FAERS Safety Report 8560437-6 (Version None)
Quarter: 2012Q3

REPORT INFORMATION
  Report Type: 
  Country: None (occurrence: None)
  Receive Date: 20120802
  Receipt Date: 20120723
  Transmission Date: 20120928
  Serious: Yes (Other)
  Sender: FDA-Public Use
  Company Number: US-009507513-1207USA011081

PATIENT

DRUGS (5)
  1. AMLODIPINE BESYLATE [Suspect]
     Dosage: 10 MG, QD
     Route: 048
  2. ZOCOR [Suspect]
     Dosage: 5 MG, QD
     Route: 048
  3. MEDROL [Suspect]
     Dosage: UNK, QD
     Route: 048
  4. XANAX [Concomitant]
     Dosage: 0.5 MG, ONCE
  5. LEVAQUIN [Suspect]

REACTIONS (7)
  - ARTERIAL DISORDER [None]
  - HYPERTENSION [None]
  - PALPITATIONS [None]
  - DRUG INEFFECTIVE [None]
  - URTICARIA [None]
  - SENSORY DISTURBANCE [None]
  - FEELING ABNORMAL [None]
